FAERS Safety Report 15917050 (Version 1)
Quarter: 2019Q1

REPORT INFORMATION
  Report Type: Spontaneous
  Country: DE (occurrence: DE)
  Receive Date: 20190205
  Receipt Date: 20190205
  Transmission Date: 20190417
  Serious: Yes (Hospitalization)
  Sender: FDA-Public Use
  Company Number: DE-ACCORD-105424

PATIENT
  Age: 76 Year
  Sex: Female
  Weight: 55 kg

DRUGS (5)
  1. AMLODIPINE [Concomitant]
     Active Substance: AMLODIPINE BESYLATE
     Dosage: 10 MG, 1-0-0-0
  2. FLUOROURACIL. [Suspect]
     Active Substance: FLUOROURACIL
     Indication: PRODUCT USED FOR UNKNOWN INDICATION
     Dosage: NK MG, NK
     Route: 065
  3. OPIPRAMOL/OPIPRAMOL HYDROCHLORIDE [Concomitant]
     Dosage: 50 MG, 1-0-0-0
  4. RAMIPRIL. [Concomitant]
     Active Substance: RAMIPRIL
     Dosage: 10 MG, 1-0-0-0
  5. LEVOTHYROXINE. [Concomitant]
     Active Substance: LEVOTHYROXINE
     Dosage: 75 MCG, 1-0-0-0

REACTIONS (5)
  - Diarrhoea [Unknown]
  - General physical health deterioration [Unknown]
  - Decreased appetite [Unknown]
  - Nausea [Unknown]
  - Abdominal pain [Unknown]
